FAERS Safety Report 9443389 (Version 2)
Quarter: 2013Q3

REPORT INFORMATION
  Report Type: Report from Study
  Country: US (occurrence: US)
  Receive Date: 20130806
  Receipt Date: 20130904
  Transmission Date: 20140515
  Serious: Yes (Other)
  Sender: FDA-Public Use
  Company Number: PHEH2013US016172

PATIENT
  Age: 22 Year
  Sex: Male

DRUGS (5)
  1. TOBI PODHALER [Suspect]
     Indication: CYSTIC FIBROSIS
     Dosage: 112 MG, BID
     Dates: start: 20130719, end: 20130725
  2. PULMOZYME [Concomitant]
     Dosage: UNK
  3. ALBUTEROL [Concomitant]
     Dosage: UNK
  4. CREON [Concomitant]
     Dosage: UNK
  5. ZANTAC [Concomitant]
     Dosage: UNK

REACTIONS (3)
  - Bacterial disease carrier [Unknown]
  - Eructation [Unknown]
  - Dysgeusia [Unknown]
